FAERS Safety Report 4860952-2 (Version None)
Quarter: 2005Q4

REPORT INFORMATION
  Report Type: 
  Country: None (occurrence: None)
  Receive Date: 20051220
  Receipt Date: 20051214
  Transmission Date: 20060501
  Serious: Yes (Other)
  Sender: FDA-Public Use
  Company Number: KR-BRISTOL-MYERS SQUIBB COMPANY-13214572

PATIENT
  Age: 91 Year
  Sex: Female

DRUGS (5)
  1. STOCRIN [Suspect]
     Indication: HIV INFECTION
     Route: 048
     Dates: start: 20050223, end: 20051213
  2. STAVUDINE [Suspect]
     Indication: HIV INFECTION
     Route: 048
     Dates: start: 20050223, end: 20051213
  3. LAMIVUDINE [Suspect]
     Indication: HIV INFECTION
     Route: 048
     Dates: start: 20050223, end: 20051213
  4. BACTRIM [Concomitant]
     Dates: start: 20050402
  5. VITAMIN [Concomitant]
     Dates: start: 20050402

REACTIONS (1)
  - HYPERLACTACIDAEMIA [None]
